FAERS Safety Report 12919212 (Version 1)
Quarter: 2016Q4

REPORT INFORMATION
  Report Type: Spontaneous
  Country: SE (occurrence: SE)
  Receive Date: 20161108
  Receipt Date: 20161108
  Transmission Date: 20170207
  Serious: Yes (Other)
  Sender: FDA-Public Use
  Company Number: SE-ACCORD-045515

PATIENT
  Age: 82 Year
  Sex: Male

DRUGS (3)
  1. FINASTERIDE. [Concomitant]
     Active Substance: FINASTERIDE
  2. AMLODIPINE [Suspect]
     Active Substance: AMLODIPINE BESYLATE
     Indication: HYPERTENSION
     Dosage: STRENGTH: 5 MG
     Dates: start: 2013
  3. COSOPT [Concomitant]
     Active Substance: DORZOLAMIDE HYDROCHLORIDE\TIMOLOL MALEATE

REACTIONS (2)
  - Tinnitus [Not Recovered/Not Resolved]
  - Product substitution issue [Unknown]
